FAERS Safety Report 20204147 (Version 2)
Quarter: 2021Q4

REPORT INFORMATION
  Report Type: Report from Study
  Country: US (occurrence: US)
  Receive Date: 20211220
  Receipt Date: 20211224
  Transmission Date: 20220303
  Serious: Yes (Death, Hospitalization)
  Sender: FDA-Public Use
  Company Number: US-BAUSCH-BL-2021-041737

PATIENT
  Age: 75 Year
  Sex: Female

DRUGS (1)
  1. XIFAXAN [Suspect]
     Active Substance: RIFAXIMIN
     Indication: Ammonia abnormal
     Dosage: 4-5 YEARS AGO
     Route: 065

REACTIONS (1)
  - Gastrointestinal bacterial infection [Fatal]

NARRATIVE: CASE EVENT DATE: 20211101
